FAERS Safety Report 23371640 (Version 1)
Quarter: 2024Q1

REPORT INFORMATION
  Report Type: Spontaneous
  Country: US (occurrence: None)
  Receive Date: 20240105
  Receipt Date: 20240105
  Transmission Date: 20240410
  Serious: Yes (Hospitalization)
  Sender: FDA-Public Use
  Company Number: None

PATIENT
  Sex: Female

DRUGS (4)
  1. OPSUMIT [Suspect]
     Active Substance: MACITENTAN
     Indication: Pulmonary arterial hypertension
     Dosage: FREQUENCY : DAILY;?
     Route: 048
     Dates: start: 201906
  2. TADALAFIL [Concomitant]
     Active Substance: TADALAFIL
  3. REMODULIN [Concomitant]
     Active Substance: TREPROSTINIL
  4. DEVICE [Suspect]
     Active Substance: DEVICE

REACTIONS (6)
  - Vascular device infection [None]
  - Staphylococcal infection [None]
  - Blood culture positive [None]
  - Staphylococcal bacteraemia [None]
  - Inadequate aseptic technique in use of product [None]
  - Product contamination [None]
